FAERS Safety Report 5427174-8 (Version None)
Quarter: 2007Q3

REPORT INFORMATION
  Report Type: 
  Country: None (occurrence: None)
  Receive Date: 20070828
  Receipt Date: 20070817
  Transmission Date: 20080115
  Serious: Yes (Other)
  Sender: FDA-Public Use
  Company Number: GB-JNJFOC-20070803914

PATIENT
  Sex: Female
  Weight: 47 kg

DRUGS (6)
  1. REMICADE [Suspect]
     Indication: RHEUMATOID ARTHRITIS
  2. METHOTREXATE [Concomitant]
  3. DIDRONGL [Concomitant]
  4. FOLIC ACID [Concomitant]
  5. MOBIC [Concomitant]
  6. REMEDEINE [Concomitant]

REACTIONS (2)
  - SMEAR CERVIX ABNORMAL [None]
  - VAGINAL CANDIDIASIS [None]
